FAERS Safety Report 12454608 (Version 5)
Quarter: 2016Q3

REPORT INFORMATION
  Report Type: Spontaneous
  Country: US (occurrence: US)
  Receive Date: 20160610
  Receipt Date: 20160727
  Transmission Date: 20161109
  Serious: Yes (Hospitalization, Other)
  Sender: FDA-Public Use
  Company Number: US-UNITED THERAPEUTICS-UNT-2016-006858

PATIENT
  Age: 43 Year
  Sex: Female
  Weight: 65.31 kg

DRUGS (8)
  1. REMODULIN [Suspect]
     Active Substance: TREPROSTINIL
     Indication: PULMONARY ARTERIAL HYPERTENSION
     Dosage: 0.020 ?G/KG, CONTINUING
     Route: 058
     Dates: start: 20160318
  2. REMODULIN [Suspect]
     Active Substance: TREPROSTINIL
     Dosage: 0.002 ?G/KG, CONTINUING
     Route: 058
  3. METOLAZONE. [Suspect]
     Active Substance: METOLAZONE
     Indication: FLUID RETENTION
  4. REMODULIN [Suspect]
     Active Substance: TREPROSTINIL
     Dosage: 0.014 ?G/KG, CONTINUING
     Route: 058
  5. LASIX [Suspect]
     Active Substance: FUROSEMIDE
     Indication: FLUID RETENTION
  6. LASIX [Suspect]
     Active Substance: FUROSEMIDE
     Indication: OEDEMA
     Dosage: UNK
     Route: 065
  7. WARFARIN [Concomitant]
     Active Substance: WARFARIN
     Indication: PRODUCT USED FOR UNKNOWN INDICATION
  8. METOLAZONE. [Suspect]
     Active Substance: METOLAZONE
     Indication: OEDEMA
     Dosage: UNK
     Route: 065

REACTIONS (10)
  - Blood potassium decreased [Recovered/Resolved]
  - Cardiac failure congestive [Unknown]
  - Lung disorder [Unknown]
  - Localised oedema [Recovered/Resolved]
  - Pulmonary arterial hypertension [Unknown]
  - Intestinal obstruction [Recovered/Resolved]
  - Electrolyte imbalance [Unknown]
  - Oedema [Not Recovered/Not Resolved]
  - Ascites [Unknown]
  - Abdominal distension [Recovered/Resolved]

NARRATIVE: CASE EVENT DATE: 2016
